FAERS Safety Report 13817655 (Version 1)
Quarter: 2017Q3

REPORT INFORMATION
  Report Type: Spontaneous
  Country: FR (occurrence: FR)
  Receive Date: 20170731
  Receipt Date: 20170731
  Transmission Date: 20171127
  Serious: Yes (Hospitalization, Other)
  Sender: FDA-Public Use
  Company Number: FR-PFIZER INC-2017325288

PATIENT
  Age: 95 Year
  Sex: Female

DRUGS (3)
  1. AMLOR [Suspect]
     Active Substance: AMLODIPINE BESYLATE
     Indication: HYPERTENSION
     Dosage: 5 MG, DAILY
     Route: 048
     Dates: end: 201704
  2. LORMETAZEPAM [Concomitant]
     Active Substance: LORMETAZEPAM
     Dosage: UNK
  3. NOCTAMIDE [Concomitant]
     Active Substance: LORMETAZEPAM
     Dosage: 1 DF, DAILY
     Route: 048

REACTIONS (11)
  - Amnesia [Unknown]
  - Malaise [Recovered/Resolved]
  - White matter lesion [Unknown]
  - Anal incontinence [Unknown]
  - Cerebral atrophy [Unknown]
  - Urinary incontinence [Unknown]
  - Hypotension [Unknown]
  - Bradycardia [Recovered/Resolved]
  - Fall [Recovered/Resolved]
  - Anaemia [Unknown]
  - Folate deficiency [Unknown]

NARRATIVE: CASE EVENT DATE: 20170416
